FAERS Safety Report 7848817 (Version 11)
Quarter: 2012Q4

REPORT INFORMATION
  Report Type: 
  Country: US (occurrence: US)
  Receive Date: 20110309
  Receipt Date: 20121106
  Transmission Date: 20130627
  Serious: Yes (Hospitalization, Other)
  Sender: FDA-Public Use
  Company Number: US-MERCK-1103USA00992

PATIENT

DRUGS (5)
  1. FOSAMAX [Suspect]
     Indication: OSTEOPENIA
     Dosage: 10 mg, qd
     Route: 048
     Dates: start: 1995, end: 200012
  2. FOSAMAX [Suspect]
     Dosage: 70 mg, QW
     Route: 048
     Dates: start: 200101, end: 20080302
  3. FOSAMAX [Suspect]
     Indication: OSTEOPENIA
     Dosage: 70 mg, QW
     Route: 048
     Dates: start: 20080303, end: 200808
  4. CALCIUM (UNSPECIFIED) [Concomitant]
     Indication: OSTEOPENIA
     Dosage: 1200 mg, qd
     Dates: start: 2006
  5. VITAMIN D (UNSPECIFIED) [Concomitant]
     Indication: OSTEOPENIA
     Dosage: 2000 IU, qd
     Dates: start: 2009

REACTIONS (30)
  - Femur fracture [Recovered/Resolved]
  - Fracture [Unknown]
  - Fall [Recovered/Resolved]
  - Atrial fibrillation [Recovered/Resolved]
  - Breast cancer [Unknown]
  - Lower limb fracture [Unknown]
  - Atrial fibrillation [Unknown]
  - Low turnover osteopathy [Unknown]
  - Tooth disorder [Unknown]
  - Arthritis [Unknown]
  - Fatigue [Unknown]
  - Insomnia [Unknown]
  - Varicose vein [Unknown]
  - Lumbar radiculopathy [Unknown]
  - Intervertebral disc degeneration [Unknown]
  - Haemorrhoids [Unknown]
  - Spinal osteoarthritis [Unknown]
  - Spinal column stenosis [Unknown]
  - Scoliosis [Unknown]
  - Breast mass [Unknown]
  - Supraventricular extrasystoles [Unknown]
  - Mitral valve incompetence [Unknown]
  - Cataract [Unknown]
  - Implant site effusion [Unknown]
  - Synovial cyst [Unknown]
  - Intervertebral disc degeneration [Unknown]
  - Pulmonary mass [Unknown]
  - Sick sinus syndrome [Unknown]
  - Pain in extremity [Unknown]
  - Bone pain [Unknown]
